FAERS Safety Report 11762351 (Version 2)
Quarter: 2015Q4

REPORT INFORMATION
  Report Type: Spontaneous
  Country: US (occurrence: None)
  Receive Date: 20151120
  Receipt Date: 20151125
  Transmission Date: 20160304
  Serious: Yes (Life-Threatening, Hospitalization, Other)
  Sender: FDA-Public Use
  Company Number: US-MDT-ADR-2015-02205

PATIENT
  Age: 23 Year
  Sex: Male

DRUGS (1)
  1. COMPOUNDED BACLOFEN INTRATHECAL (2000 MCG/ML) [Suspect]
     Active Substance: BACLOFEN
     Indication: CEREBRAL PALSY
     Dosage: 771.9 MCG/DAY

REACTIONS (11)
  - Irritability [None]
  - Musculoskeletal stiffness [None]
  - Agitation [None]
  - Insomnia [None]
  - Muscle tightness [None]
  - Pyrexia [None]
  - Gastrointestinal bacterial infection [None]
  - Clostridium difficile infection [None]
  - Seizure [None]
  - Muscle spasms [None]
  - Drug withdrawal syndrome [None]
